FAERS Safety Report 6038155-8 (Version None)
Quarter: 2009Q1

REPORT INFORMATION
  Report Type: 
  Country: None (occurrence: None)
  Receive Date: 20090115
  Receipt Date: 20090113
  Transmission Date: 20090719
  Serious: Yes (Hospitalization)
  Sender: FDA-Public Use
  Company Number: GB-ROCHE-604118

PATIENT
  Sex: Female
  Weight: 100 kg

DRUGS (5)
  1. ORLISTAT [Suspect]
     Indication: OBESITY
     Route: 048
     Dates: start: 20081114
  2. ATENOLOL [Concomitant]
     Indication: BLOOD PRESSURE
     Route: 048
  3. UNSPECIFIED DRUG [Concomitant]
     Indication: BLOOD PRESSURE
     Dosage: DRUG REPORTED AS DIAXOZIN.
     Route: 048
  4. FRUSEMIDE [Concomitant]
     Indication: BLOOD PRESSURE
     Route: 048
  5. ASPIRIN [Concomitant]
     Route: 048

REACTIONS (2)
  - ANGINA PECTORIS [None]
  - DYSPNOEA EXERTIONAL [None]
